FAERS Safety Report 14685762 (Version 1)
Quarter: 2018Q1

REPORT INFORMATION
  Report Type: Spontaneous
  Country: US (occurrence: US)
  Receive Date: 20180326
  Receipt Date: 20180326
  Transmission Date: 20180509
  Serious: Yes (Disabling)
  Sender: FDA-Public Use
  Company Number: None

PATIENT
  Age: 25 Year
  Sex: Female
  Weight: 72 kg

DRUGS (1)
  1. QUIETIAPINE (QUETIAPINE FUMARATE) (UNKNOWN) [Suspect]
     Active Substance: QUETIAPINE
     Indication: ANXIETY
     Route: 048

REACTIONS (2)
  - Syncope [None]
  - Tinnitus [None]
